FAERS Safety Report 9411444 (Version 2)
Quarter: 2013Q3

REPORT INFORMATION
  Report Type: Spontaneous
  Country: US (occurrence: US)
  Receive Date: 20130722
  Receipt Date: 20130809
  Transmission Date: 20140515
  Serious: No
  Sender: FDA-Public Use
  Company Number: US-009507513-1307USA011397

PATIENT
  Age: 62 Year
  Sex: Male
  Weight: 96.6 kg

DRUGS (5)
  1. VICTRELIS [Suspect]
     Indication: HEPATITIS C
     Dosage: 800 MG, Q8H (200 MG 4 CAPS Q8HRS)
     Route: 048
     Dates: start: 20130210
  2. REBETOL [Suspect]
     Indication: HEPATITIS C
     Dosage: 400 MG, QAM
     Route: 048
     Dates: start: 20130210
  3. REBETOL [Suspect]
     Dosage: 600 MG, QPM
     Route: 048
     Dates: start: 20130210
  4. PEGASYS [Suspect]
     Indication: HEPATITIS C
     Dosage: PROCLICK, 180 MCG/0.5ML SOLUTION AS DIRECTED ONCE WEEKLY
     Route: 058
     Dates: start: 20130210
  5. RANITIDINE HYDROCHLORIDE [Concomitant]
     Dosage: 1 DF, QD

REACTIONS (2)
  - Pruritus [Not Recovered/Not Resolved]
  - Rash [Not Recovered/Not Resolved]
